FAERS Safety Report 5399483-2 (Version None)
Quarter: 2007Q3

REPORT INFORMATION
  Report Type: 
  Country: None (occurrence: None)
  Receive Date: 20070727
  Receipt Date: 20070716
  Transmission Date: 20080115
  Serious: Yes (Hospitalization)
  Sender: FDA-Public Use
  Company Number: US-SHR-US-2004-032189

PATIENT
  Age: 34 Year
  Sex: Female
  Weight: 68.027 kg

DRUGS (9)
  1. BETASERON [Suspect]
     Indication: MULTIPLE SCLEROSIS
     Dosage: 8 MIU, EVERY 2D-3X/WEEK
     Route: 058
     Dates: start: 20040330, end: 20040901
  2. REMERON [Concomitant]
     Indication: DEPRESSION
     Dosage: 15 MG, 1X/DAY
     Route: 048
  3. VITAMIN CAP [Concomitant]
  4. NORTREL                                 /BRA/ [Concomitant]
  5. EFFEXOR XR [Concomitant]
     Dosage: 75 MG, EVERY 8H
     Route: 048
  6. AVONEX [Concomitant]
     Indication: RELAPSING-REMITTING MULTIPLE SCLEROSIS
     Dates: start: 20070601
  7. LAMOTRIGINE [Concomitant]
     Dosage: 100 MG, 2X/DAY
  8. BACLOFEN [Concomitant]
     Dosage: 20 MG, AS REQ'D
  9. CYCLOBENZAPRINE HCL [Concomitant]
     Dosage: UNK, AS REQ'D

REACTIONS (16)
  - ACUTE RESPIRATORY FAILURE [None]
  - DRUG SCREEN POSITIVE [None]
  - ENCEPHALOPATHY [None]
  - HAEMATURIA [None]
  - HYPOCALCAEMIA [None]
  - HYPOKALAEMIA [None]
  - HYPOPHOSPHATAEMIA [None]
  - MEMORY IMPAIRMENT [None]
  - METABOLIC ACIDOSIS [None]
  - MULTIPLE SCLEROSIS [None]
  - NORMOCHROMIC NORMOCYTIC ANAEMIA [None]
  - PNEUMONIA ASPIRATION [None]
  - STATUS EPILEPTICUS [None]
  - THROMBOCYTHAEMIA [None]
  - TRANSAMINASES INCREASED [None]
  - URINARY TRACT INFECTION [None]
